FAERS Safety Report 9675318 (Version 1)
Quarter: 2013Q4

REPORT INFORMATION
  Report Type: Spontaneous
  Country: US (occurrence: US)
  Receive Date: 20131107
  Receipt Date: 20131107
  Transmission Date: 20140711
  Serious: No
  Sender: FDA-Public Use
  Company Number: US-PFIZER INC-2013314418

PATIENT
  Sex: Male

DRUGS (1)
  1. NICOTROL INHALER [Suspect]
     Dosage: UNK
     Dates: start: 201310

REACTIONS (5)
  - Stress [Unknown]
  - Asthenia [Unknown]
  - Tobacco user [Unknown]
  - Depressed mood [Unknown]
  - Feeling abnormal [Unknown]
